FAERS Safety Report 12072596 (Version 1)
Quarter: 2016Q1

REPORT INFORMATION
  Report Type: Spontaneous
  Country: EG (occurrence: EG)
  Receive Date: 20160212
  Receipt Date: 20160212
  Transmission Date: 20160526
  Serious: Yes (Life-Threatening)
  Sender: FDA-Public Use
  Company Number: EG-ABBVIE-16P-048-1555921-00

PATIENT
  Age: 58 Year
  Sex: Male

DRUGS (3)
  1. RIBAVIRIN. [Concomitant]
     Active Substance: RIBAVIRIN
     Indication: HEPATITIS C
     Dosage: AFTER DINNER
     Route: 048
     Dates: start: 20160128, end: 20160129
  2. QUVERO [Suspect]
     Active Substance: OMBITASVIR\PARITAPREVIR\RITONAVIR
     Indication: HEPATITIS C
     Dosage: AFTER LUNCH
     Route: 048
     Dates: start: 20160128, end: 20160130
  3. RIBAVIRIN. [Concomitant]
     Active Substance: RIBAVIRIN
     Route: 048
     Dates: start: 2013

REACTIONS (8)
  - Hypotension [Recovered/Resolved]
  - Anaphylactic shock [Unknown]
  - Insomnia [Recovering/Resolving]
  - Tachycardia [Recovered/Resolved]
  - Rash [Recovering/Resolving]
  - Pruritus [Recovering/Resolving]
  - Rash generalised [Recovering/Resolving]
  - Fatigue [Unknown]

NARRATIVE: CASE EVENT DATE: 20160129
